FAERS Safety Report 12203901 (Version 3)
Quarter: 2016Q4

REPORT INFORMATION
  Report Type: Spontaneous
  Country: TR (occurrence: TR)
  Receive Date: 20160323
  Receipt Date: 20161230
  Transmission Date: 20170207
  Serious: Yes (Hospitalization, Other)
  Sender: FDA-Public Use
  Company Number: TR-BAYER-2016-050000

PATIENT
  Age: 70 Year
  Sex: Female

DRUGS (8)
  1. METFORMIN HYDROCHLORIDE. [Concomitant]
     Active Substance: METFORMIN HYDROCHLORIDE
     Dosage: UNK
  2. AVELOX [Suspect]
     Active Substance: MOXIFLOXACIN HYDROCHLORIDE
     Indication: BRONCHITIS
     Dosage: UNK
  3. INSULIN [Concomitant]
     Active Substance: INSULIN NOS
     Dosage: UNK
  4. ANTIBIOTICS [Concomitant]
     Active Substance: UNSPECIFIED INGREDIENT
     Dosage: UNK
  5. CONIEL [Concomitant]
     Active Substance: BENIDIPINE HYDROCHLORIDE
     Dosage: UNK
  6. AMLODIPINE BESILATE [Concomitant]
     Active Substance: AMLODIPINE BESYLATE
     Dosage: UNK
  7. GLIPIZIDE W/METFORMIN [Concomitant]
     Active Substance: GLIPIZIDE\METFORMIN HYDROCHLORIDE
     Dosage: UNK
  8. AMLODIPINE BESILATE [Concomitant]
     Active Substance: AMLODIPINE BESYLATE
     Dosage: UNK

REACTIONS (18)
  - Immune system disorder [Recovered/Resolved]
  - Depression [Recovered/Resolved]
  - Blood iron decreased [Recovered/Resolved]
  - Vitamin B12 decreased [Recovered/Resolved]
  - Renal failure [Recovered/Resolved]
  - Immobile [Recovered/Resolved]
  - Brain injury [Recovered/Resolved]
  - Aphasia [Recovered/Resolved]
  - Derealisation [Recovered/Resolved]
  - Blood urea increased [Recovered/Resolved]
  - Urinary incontinence [Recovering/Resolving]
  - Vitamin D decreased [Recovered/Resolved]
  - Peripheral embolism [Recovered/Resolved]
  - Unresponsive to stimuli [Recovered/Resolved]
  - Hyperacusis [Recovered/Resolved]
  - Confusional state [Recovered/Resolved]
  - Overweight [None]
  - Oedema [Not Recovered/Not Resolved]
